FAERS Safety Report 21554090 (Version 1)
Quarter: 2022Q4

REPORT INFORMATION
  Report Type: Spontaneous
  Country: SE (occurrence: None)
  Receive Date: 20221104
  Receipt Date: 20221104
  Transmission Date: 20230113
  Serious: Yes (Hospitalization)
  Sender: FDA-Public Use
  Company Number: SE-ROCHE-3212058

PATIENT
  Age: 47 Year
  Sex: Female

DRUGS (1)
  1. KADCYLA [Suspect]
     Active Substance: ADO-TRASTUZUMAB EMTANSINE
     Indication: Product used for unknown indication
     Route: 065
     Dates: start: 202203, end: 202207

REACTIONS (5)
  - Cough [Unknown]
  - Unevaluable event [Unknown]
  - Dyspnoea [Unknown]
  - Pulmonary septal thickening [Unknown]
  - Pneumonia aspiration [Unknown]
